FAERS Safety Report 10520483 (Version 1)
Quarter: 2014Q4

REPORT INFORMATION
  Report Type: Spontaneous
  Country: US (occurrence: US)
  Receive Date: 20141015
  Receipt Date: 20141015
  Transmission Date: 20150528
  Serious: Yes (Other)
  Sender: FDA-Public Use
  Company Number: US-RECKITT BENCKISER PHARMACEUTICAL, INC-RB-72482-2014

PATIENT
  Age: 49 Year
  Sex: Male

DRUGS (1)
  1. SUBOXONE [Suspect]
     Active Substance: BUPRENORPHINE HYDROCHLORIDE\NALOXONE HYDROCHLORIDE
     Indication: DRUG DEPENDENCE

REACTIONS (4)
  - Drug withdrawal syndrome [Recovered/Resolved]
  - Arthropathy [Recovered/Resolved]
  - Lung disorder [Recovered/Resolved]
  - Seizure [Recovered/Resolved]
